FAERS Safety Report 9773845 (Version 1)
Quarter: 2013Q4

REPORT INFORMATION
  Report Type: Spontaneous
  Country: GB (occurrence: GB)
  Receive Date: 20131220
  Receipt Date: 20131220
  Transmission Date: 20140711
  Serious: Yes (Hospitalization, Other)
  Sender: FDA-Public Use
  Company Number: GB-ROCHE-1317440

PATIENT
  Sex: Female

DRUGS (2)
  1. HERCEPTIN [Suspect]
     Indication: BREAST CANCER
     Route: 042
  2. DOCETAXEL [Concomitant]

REACTIONS (8)
  - Chest pain [Unknown]
  - Dyspnoea [Unknown]
  - Fall [Unknown]
  - Neck pain [Unknown]
  - Malaise [Unknown]
  - Cough [Unknown]
  - Headache [Unknown]
  - Dysphagia [Unknown]
